FAERS Safety Report 18705771 (Version 1)
Quarter: 2021Q1

REPORT INFORMATION
  Report Type: Spontaneous
  Country: US (occurrence: US)
  Receive Date: 20210106
  Receipt Date: 20210106
  Transmission Date: 20210419
  Serious: No
  Sender: FDA-Public Use
  Company Number: US-BAYER-2021-011164

PATIENT
  Sex: Female

DRUGS (2)
  1. ADEMPAS [Suspect]
     Active Substance: RIOCIGUAT
     Indication: PRODUCT USED FOR UNKNOWN INDICATION
     Route: 048
  2. SELEXIPAG [Concomitant]
     Active Substance: SELEXIPAG
     Indication: PULMONARY ARTERIAL HYPERTENSION
     Dosage: 1000 ?G, BID
     Route: 048
     Dates: start: 20181204

REACTIONS (2)
  - Headache [Recovering/Resolving]
  - Intentional product use issue [None]
